FAERS Safety Report 19741975 (Version 2)
Quarter: 2021Q3

REPORT INFORMATION
  Report Type: Spontaneous
  Country: US (occurrence: US)
  Receive Date: 20210824
  Receipt Date: 20210901
  Transmission Date: 20211014
  Serious: No
  Sender: FDA-Public Use
  Company Number: US-AMGEN-USASP2021129747

PATIENT
  Age: 84 Year
  Sex: Female
  Weight: 56.69 kg

DRUGS (2)
  1. KYPROLIS [Suspect]
     Active Substance: CARFILZOMIB
     Indication: PLASMA CELL MYELOMA
     Dosage: 82 MILLIGRAM (56 MILLIGRAM/SQ. METER) D1,8,15 EVERY 28 DAYS
     Route: 042
     Dates: start: 20200310
  2. KYPROLIS [Suspect]
     Active Substance: CARFILZOMIB
     Dosage: 82 MILLIGRAM (56 MILLIGRAM/SQ. METER) D1,8,15 EVERY 28 DAYS
     Route: 042
     Dates: start: 20210826

REACTIONS (1)
  - Blood creatinine increased [Recovering/Resolving]
